FAERS Safety Report 5417110-2 (Version None)
Quarter: 2007Q3

REPORT INFORMATION
  Report Type: 
  Country: None (occurrence: None)
  Receive Date: 20070718
  Receipt Date: 20061023
  Transmission Date: 20080115
  Serious: Yes (Hospitalization, Other)
  Sender: FDA-Public Use
  Company Number: 2006065321

PATIENT
  Age: 52 Year
  Sex: Female
  Weight: 104.7809 kg

DRUGS (9)
  1. CELEBREX [Suspect]
     Indication: ARTHRITIS
     Dosage: 200 (1 IN 1 D),ORAL
     Route: 048
     Dates: start: 19990701, end: 20030901
  2. HYDROCHLOROTHIAZIDE [Concomitant]
  3. ALLOPURINOL [Concomitant]
  4. AVAPRO [Concomitant]
  5. GLYBURIDE [Concomitant]
  6. SYNTHROID [Concomitant]
  7. TRICOR [Concomitant]
  8. ALLEGRA [Concomitant]
  9. CLARINEX [Concomitant]

REACTIONS (3)
  - ACUTE MYOCARDIAL INFARCTION [None]
  - ARTERIAL OCCLUSIVE DISEASE [None]
  - DEPRESSION [None]
